FAERS Safety Report 23831162 (Version 1)
Quarter: 2024Q2

REPORT INFORMATION
  Report Type: Spontaneous
  Country: US (occurrence: None)
  Receive Date: 20240507
  Receipt Date: 20240507
  Transmission Date: 20240717
  Serious: Yes (Other)
  Sender: FDA-Public Use
  Company Number: None

PATIENT
  Age: 27 Year
  Sex: Female
  Weight: 58.5 kg

DRUGS (11)
  1. HERBALS [Suspect]
     Active Substance: HERBALS
     Indication: Depression
     Dosage: OTHER QUANTITY : 1 CAPSULE(S);?
     Route: 048
     Dates: start: 20170801, end: 20240502
  2. HERBALS\MITRAGYNINE [Suspect]
     Active Substance: HERBALS\MITRAGYNINE
  3. TYROSINE [Concomitant]
     Active Substance: TYROSINE
  4. 5-HTP [Concomitant]
  5. DLPA [Concomitant]
  6. Vitamin C [Concomitant]
  7. VITAMIN D [Concomitant]
     Active Substance: VITAMIN D NOS
  8. VITAMIN B12 [Concomitant]
     Active Substance: CYANOCOBALAMIN
  9. MAGNESIUM CITRATE [Concomitant]
     Active Substance: MAGNESIUM CITRATE
  10. MELATONIN [Concomitant]
     Active Substance: MELATONIN
  11. HOMEOPATHICS [Concomitant]
     Active Substance: ARNICA MONTANA\CAUSTICUM\COMFREY ROOT\HOMEOPATHICS\LEDUM PALUSTRE TWIG\PSEUDOGNAPHALIUM OBTUSIFOLIUM

REACTIONS (15)
  - Substance use [None]
  - Drug dependence [None]
  - Physical product label issue [None]
  - Weight decreased [None]
  - Alopecia [None]
  - Skin discolouration [None]
  - Withdrawal syndrome [None]
  - Malaise [None]
  - Nausea [None]
  - Restlessness [None]
  - Insomnia [None]
  - Temperature regulation disorder [None]
  - Depression [None]
  - Therapy cessation [None]
  - Dependence [None]

NARRATIVE: CASE EVENT DATE: 20240502
